FAERS Safety Report 25540712 (Version 1)
Quarter: 2025Q3

REPORT INFORMATION
  Report Type: Spontaneous
  Country: EU (occurrence: EU)
  Receive Date: 20250710
  Receipt Date: 20250710
  Transmission Date: 20251020
  Serious: Yes (Other)
  Sender: SANDOZ
  Company Number: EU-AMGEN-POLSP2025125755

PATIENT
  Age: 60 Year
  Sex: Female

DRUGS (8)
  1. FILGRASTIM [Suspect]
     Active Substance: FILGRASTIM
     Indication: Product used for unknown indication
     Route: 065
  2. VECTIBIX [Suspect]
     Active Substance: PANITUMUMAB
     Indication: Colorectal cancer
     Route: 065
  3. VECTIBIX [Suspect]
     Active Substance: PANITUMUMAB
     Route: 065
  4. VECTIBIX [Suspect]
     Active Substance: PANITUMUMAB
     Route: 065
  5. FLUOROURACIL [Concomitant]
     Active Substance: FLUOROURACIL
     Indication: Colorectal cancer
     Route: 065
     Dates: start: 20220527, end: 20230407
  6. LEUCOVORIN [Concomitant]
     Active Substance: LEUCOVORIN\LEUCOVORIN CALCIUM
     Indication: Colorectal cancer
     Route: 065
     Dates: start: 20220527, end: 20230407
  7. IRINOTECAN [Concomitant]
     Active Substance: IRINOTECAN
     Indication: Colorectal cancer
     Route: 065
     Dates: start: 20220527, end: 20230407
  8. OXALIPLATIN [Concomitant]
     Active Substance: OXALIPLATIN
     Indication: Colorectal cancer
     Route: 065
     Dates: start: 20230504, end: 20231218

REACTIONS (13)
  - Colorectal cancer [Unknown]
  - Polyneuropathy [Unknown]
  - Pulmonary mass [Unknown]
  - Thrombocytopenia [Unknown]
  - Skin lesion [Unknown]
  - Platelet count decreased [Unknown]
  - Hypomagnesaemia [Unknown]
  - Dry skin [Unknown]
  - Skin fissures [Unknown]
  - Rash papular [Unknown]
  - Erythema [Unknown]
  - Asthenia [Unknown]
  - Diarrhoea [Unknown]

NARRATIVE: CASE EVENT DATE: 20230101
